FAERS Safety Report 9467487 (Version 1)
Quarter: 2013Q3

REPORT INFORMATION
  Report Type: Spontaneous
  Country: US (occurrence: None)
  Receive Date: 20130819
  Receipt Date: 20130819
  Transmission Date: 20140515
  Serious: Yes (Hospitalization)
  Sender: FDA-Public Use
  Company Number: None

PATIENT
  Age: 57 Year
  Sex: Male
  Weight: 94.9 kg

DRUGS (1)
  1. ALFA 2 INTERFERON 2B (INTRON-A) [Suspect]
     Dates: end: 20130812

REACTIONS (7)
  - Muscular weakness [None]
  - Carotid artery stenosis [None]
  - Speech disorder [None]
  - Disturbance in attention [None]
  - Mitral valve incompetence [None]
  - Left atrial dilatation [None]
  - Pyrexia [None]
